FAERS Safety Report 8072315-X (Version None)
Quarter: 2012Q1

REPORT INFORMATION
  Report Type: 
  Country: None (occurrence: None)
  Receive Date: 20120126
  Receipt Date: 20120118
  Transmission Date: 20120608
  Serious: Yes (Hospitalization)
  Sender: FDA-Public Use
  Company Number: US-BAYER-2011-092275

PATIENT
  Age: 43 Year
  Sex: Female
  Weight: 91.61 kg

DRUGS (7)
  1. FERREX [Concomitant]
  2. IBUPROFEN [Concomitant]
  3. YAZ [Suspect]
     Indication: CONTRACEPTION
     Dosage: UNK
     Dates: start: 20090719, end: 20090904
  4. YAZ [Suspect]
     Indication: PREMENSTRUAL SYNDROME
  5. AZITHROMYCIN [Concomitant]
  6. CLEOCIN HYDROCHLORIDE [Concomitant]
  7. FLUOXETINE [Concomitant]

REACTIONS (2)
  - PULMONARY EMBOLISM [None]
  - INJURY [None]
